FAERS Safety Report 4946834-6 (Version None)
Quarter: 2006Q1

REPORT INFORMATION
  Report Type: 
  Country: None (occurrence: None)
  Receive Date: 20060317
  Receipt Date: 20051207
  Transmission Date: 20060701
  Serious: Yes (Hospitalization)
  Sender: FDA-Public Use
  Company Number: US-MERCK-0512USA01286

PATIENT
  Age: 71 Year
  Sex: Male
  Weight: 90 kg

DRUGS (14)
  1. VIOXX [Suspect]
     Indication: OSTEOARTHRITIS
     Route: 048
     Dates: start: 19991201, end: 20040901
  2. VIOXX [Suspect]
     Indication: CARPAL TUNNEL SYNDROME
     Route: 048
     Dates: start: 19991201, end: 20040901
  3. CARDIZEM [Concomitant]
     Indication: ATRIAL FIBRILLATION
     Route: 065
     Dates: start: 19940422, end: 20040818
  4. DILTIAZEM HYDROCHLORIDE [Concomitant]
     Route: 065
     Dates: start: 19981029, end: 20040509
  5. TIAZAC [Concomitant]
     Route: 065
     Dates: start: 19980810, end: 20040728
  6. FLOMAX (MORNIFLUMATE) [Concomitant]
     Indication: BENIGN PROSTATIC HYPERPLASIA
     Route: 065
     Dates: start: 20031217, end: 20051010
  7. DIGOXIN [Concomitant]
     Indication: ATRIAL FIBRILLATION
     Route: 065
     Dates: start: 19981029
  8. COUMADIN [Concomitant]
     Indication: ATRIAL FIBRILLATION
     Route: 065
     Dates: start: 20031209
  9. ASPIRIN [Concomitant]
     Indication: PROPHYLAXIS
     Route: 065
     Dates: start: 19950718
  10. ECOTRIN [Concomitant]
     Indication: PROPHYLAXIS
     Route: 065
     Dates: start: 19940125, end: 20000124
  11. PLAVIX [Concomitant]
     Route: 065
     Dates: start: 20031030, end: 20031208
  12. TYLENOL (CAPLET) [Concomitant]
     Route: 065
     Dates: start: 19970213, end: 20010615
  13. DARVOCET [Concomitant]
     Route: 065
     Dates: start: 20010615, end: 20030429
  14. VICODIN [Concomitant]
     Route: 065
     Dates: start: 20040206

REACTIONS (18)
  - BALANITIS [None]
  - CARDIAC FAILURE CONGESTIVE [None]
  - CARDIAC MURMUR [None]
  - CARPAL TUNNEL SYNDROME [None]
  - CEREBROVASCULAR ACCIDENT [None]
  - DEPRESSION [None]
  - ELECTROCARDIOGRAM ST-T CHANGE [None]
  - FALL [None]
  - GASTROOESOPHAGEAL REFLUX DISEASE [None]
  - HEMIPARESIS [None]
  - HYPOAESTHESIA [None]
  - LUMBAR SPINAL STENOSIS [None]
  - MITRAL VALVE STENOSIS [None]
  - PITUITARY TUMOUR [None]
  - ROTATOR CUFF SYNDROME [None]
  - SKIN LESION [None]
  - SYNCOPE [None]
  - URINARY INCONTINENCE [None]
